FAERS Safety Report 10111058 (Version 2)
Quarter: 2014Q3

REPORT INFORMATION
  Report Type: Spontaneous
  Country: US (occurrence: None)
  Receive Date: 20140421
  Receipt Date: 20140722
  Transmission Date: 20150326
  Serious: No
  Sender: FDA-Public Use
  Company Number: AEGR000290

PATIENT
  Age: 58 Year
  Sex: Female
  Weight: 107.5 kg

DRUGS (8)
  1. PLAVIX [Concomitant]
     Active Substance: CLOPIDOGREL BISULFATE
  2. WELCHOL (COLESEVELAM HYDROCHLORIDE) (625 MILLIGRAM, TABLET) (COLESEVELAM HYDROCHLORIDE) [Concomitant]
     Active Substance: COLESEVELAM HYDROCHLORIDE
  3. ZETIA [Concomitant]
     Active Substance: EZETIMIBE
  4. JUXTAPID [Suspect]
     Active Substance: LOMITAPIDE MESYLATE
     Indication: TYPE IIA HYPERLIPIDAEMIA
     Route: 048
     Dates: start: 2014, end: 201406
  5. LISINOPRIL (LISINOPRIL) [Concomitant]
     Active Substance: LISINOPRIL
  6. CRESTOR [Concomitant]
     Active Substance: ROSUVASTATIN CALCIUM
  7. FLUOXETINE [Concomitant]
     Active Substance: FLUOXETINE\FLUOXETINE HYDROCHLORIDE
  8. NASONEX [Concomitant]
     Active Substance: MOMETASONE FUROATE

REACTIONS (3)
  - Headache [None]
  - Nausea [None]
  - Hypertension [None]

NARRATIVE: CASE EVENT DATE: 2014
